FAERS Safety Report 23917386 (Version 1)
Quarter: 2024Q2

REPORT INFORMATION
  Report Type: Report from Study
  Country: US (occurrence: US)
  Receive Date: 20240529
  Receipt Date: 20240529
  Transmission Date: 20240715
  Serious: Yes (Hospitalization)
  Sender: FDA-Public Use
  Company Number: US-JNJFOC-20240564826

PATIENT

DRUGS (26)
  1. TECVAYLI [Suspect]
     Active Substance: TECLISTAMAB-CQYV
     Indication: Product used for unknown indication
     Dosage: REMS CODE: 95086107
     Route: 058
     Dates: start: 20230612
  2. TECVAYLI [Suspect]
     Active Substance: TECLISTAMAB-CQYV
     Dosage: REMS CODE: 35320650
     Route: 058
     Dates: start: 20230619
  3. TECVAYLI [Suspect]
     Active Substance: TECLISTAMAB-CQYV
     Dosage: REMS CODE: 63018002
     Route: 058
     Dates: start: 20230626
  4. TECVAYLI [Suspect]
     Active Substance: TECLISTAMAB-CQYV
     Dosage: REMS CODE: 53245790?ON 10-JUL-2023, HELD DUE TO KIDNEY STONE, 17-JUL-2023,  HELD FOR HEADACHE
     Route: 058
     Dates: start: 20230703
  5. TECVAYLI [Suspect]
     Active Substance: TECLISTAMAB-CQYV
     Dosage: REMS CODE: 3720463
     Route: 058
     Dates: start: 20230724
  6. TECVAYLI [Suspect]
     Active Substance: TECLISTAMAB-CQYV
     Dosage: REMS CODE: 19388854
     Route: 058
     Dates: start: 20230731
  7. TECVAYLI [Suspect]
     Active Substance: TECLISTAMAB-CQYV
     Dosage: REMS CODE: 3068418
     Route: 058
     Dates: start: 20230807
  8. TECVAYLI [Suspect]
     Active Substance: TECLISTAMAB-CQYV
     Dosage: REMS CODE: 18143385
     Route: 058
     Dates: start: 20230814
  9. TECVAYLI [Suspect]
     Active Substance: TECLISTAMAB-CQYV
     Dosage: REMS CODE: 57613115
     Route: 058
     Dates: start: 20230821
  10. TECVAYLI [Suspect]
     Active Substance: TECLISTAMAB-CQYV
     Dosage: REMS CODE: 48153645
     Route: 058
     Dates: start: 20230829
  11. TECVAYLI [Suspect]
     Active Substance: TECLISTAMAB-CQYV
     Dosage: REMS CODE: 85140537
     Route: 058
     Dates: start: 20230905
  12. TECVAYLI [Suspect]
     Active Substance: TECLISTAMAB-CQYV
     Dosage: REMS CODE: 57243745
     Route: 058
     Dates: start: 20230911
  13. TECVAYLI [Suspect]
     Active Substance: TECLISTAMAB-CQYV
     Dosage: REMS CODE: 99432480
     Route: 058
     Dates: start: 20230918
  14. TECVAYLI [Suspect]
     Active Substance: TECLISTAMAB-CQYV
     Dosage: REMS CODE: 94919733
     Route: 058
     Dates: start: 20230925
  15. TECVAYLI [Suspect]
     Active Substance: TECLISTAMAB-CQYV
     Dosage: REMS CODE; 506117
     Route: 058
     Dates: start: 20231002
  16. TECVAYLI [Suspect]
     Active Substance: TECLISTAMAB-CQYV
     Dosage: REMS CODE: 92976358
     Route: 058
     Dates: start: 20231009
  17. TECVAYLI [Suspect]
     Active Substance: TECLISTAMAB-CQYV
     Dosage: REMS CODE; 16011156
     Route: 058
     Dates: start: 20231016
  18. TECVAYLI [Suspect]
     Active Substance: TECLISTAMAB-CQYV
     Dosage: REMS CODE; 39022222
     Route: 058
     Dates: start: 20231023
  19. TECVAYLI [Suspect]
     Active Substance: TECLISTAMAB-CQYV
     Dosage: REMS CODE; 68434632?ON 09-NOV-2023, TECLISTAMAB HELD AS PER PATIENT REQUEST
     Route: 058
     Dates: start: 20231102
  20. TECVAYLI [Suspect]
     Active Substance: TECLISTAMAB-CQYV
     Dosage: ON 16-NOV-2023, TECLISTAMAB HELD FOR HOSPITALIZATION OF PYELONEPHRITIS
     Route: 058
  21. TECVAYLI [Suspect]
     Active Substance: TECLISTAMAB-CQYV
     Dosage: ON 23-NOV-2023, TECLISTAMAB HELD FOR RECOVERING FROM HOSPITALIZATION
     Route: 058
  22. TECVAYLI [Suspect]
     Active Substance: TECLISTAMAB-CQYV
     Dosage: ON 30-11-2023, TECLISTAMAB HELD FOR RECOVERING
     Route: 058
  23. TECVAYLI [Suspect]
     Active Substance: TECLISTAMAB-CQYV
     Dosage: ON 07-DEC-2023, TECLISTAMAB HELD FOR RECOVERING
     Route: 058
  24. TECVAYLI [Suspect]
     Active Substance: TECLISTAMAB-CQYV
     Dosage: REMS CODE; 81571008
     Route: 058
     Dates: start: 20231218
  25. TECVAYLI [Suspect]
     Active Substance: TECLISTAMAB-CQYV
     Dosage: REMS CODE: 17144731
     Route: 058
     Dates: start: 20231226
  26. TECVAYLI [Suspect]
     Active Substance: TECLISTAMAB-CQYV
     Dosage: REMS CODE; 21091538
     Route: 058
     Dates: start: 20240102

REACTIONS (4)
  - Pyelonephritis [Recovering/Resolving]
  - Nephrolithiasis [Unknown]
  - Headache [Unknown]
  - Treatment noncompliance [Unknown]

NARRATIVE: CASE EVENT DATE: 20230710
